FAERS Safety Report 5081324-4 (Version None)
Quarter: 2006Q3

REPORT INFORMATION
  Report Type: 
  Country: None (occurrence: None)
  Receive Date: 20060814
  Receipt Date: 20060814
  Transmission Date: 20061208
  Serious: Yes (Hospitalization)
  Sender: FDA-Public Use
  Company Number: None

PATIENT
  Age: 52 Year
  Sex: Male

DRUGS (1)
  1. AZATHIOPRINE [Suspect]
     Dosage: 100LMG QD X 2 WEEKS (STARTED 2 WEEKS AGO)

REACTIONS (7)
  - ARTHRALGIA [None]
  - DIARRHOEA [None]
  - FATIGUE [None]
  - GAIT DISTURBANCE [None]
  - HAEMATURIA [None]
  - MYALGIA [None]
  - PYREXIA [None]
